FAERS Safety Report 10663717 (Version 3)
Quarter: 2015Q1

REPORT INFORMATION
  Report Type: Spontaneous
  Country: US (occurrence: US)
  Receive Date: 20141219
  Receipt Date: 20150212
  Transmission Date: 20150720
  Serious: Yes (Hospitalization)
  Sender: FDA-Public Use
  Company Number: US-BEH-2014047275

PATIENT
  Age: 19 Year
  Sex: Male
  Weight: 69 kg

DRUGS (9)
  1. SODIUM CHLORIDE. [Concomitant]
     Active Substance: SODIUM CHLORIDE
  2. IBUPROFEN. [Concomitant]
     Active Substance: IBUPROFEN
  3. NEURONTIN [Concomitant]
     Active Substance: GABAPENTIN
  4. VITAMIN D [Concomitant]
     Active Substance: CHOLECALCIFEROL
  5. EPIPEN [Concomitant]
     Active Substance: EPINEPHRINE
  6. MULTIVITAMIN [Concomitant]
     Active Substance: VITAMINS
  7. FIRAZYR [Concomitant]
     Active Substance: ICATIBANT ACETATE
  8. DANAZOL. [Concomitant]
     Active Substance: DANAZOL
  9. BERINERT [Suspect]
     Active Substance: HUMAN C1-ESTERASE INHIBITOR
     Indication: HEREDITARY ANGIOEDEMA
     Dosage: 500 UNIT VIAL; 1500 UNITS AS NEEDED
     Route: 042
     Dates: start: 20141208

REACTIONS (2)
  - Spinal column stenosis [Recovered/Resolved]
  - Surgery [Recovered/Resolved]

NARRATIVE: CASE EVENT DATE: 20141208
